FAERS Safety Report 14333351 (Version 1)
Quarter: 2017Q4

REPORT INFORMATION
  Report Type: Spontaneous
  Country: FR (occurrence: FR)
  Receive Date: 20171228
  Receipt Date: 20171228
  Transmission Date: 20180321
  Serious: Yes (Other)
  Sender: FDA-Public Use
  Company Number: FR-ASTRAZENECA-2017SF31430

PATIENT
  Age: 28 Year
  Sex: Male
  Weight: 88 kg

DRUGS (8)
  1. VALIUM [Concomitant]
     Active Substance: DIAZEPAM
  2. DAFALGAN [Concomitant]
     Active Substance: ACETAMINOPHEN
  3. LOXAPAC [Concomitant]
     Active Substance: LOXAPINE SUCCINATE
  4. DEPAKINE [Suspect]
     Active Substance: VALPROATE SODIUM
     Indication: MOOD DISORDER DUE TO A GENERAL MEDICAL CONDITION
     Route: 048
     Dates: start: 20170808
  5. DUPHALAC [Concomitant]
     Active Substance: LACTULOSE
  6. QUETIAPINE. [Suspect]
     Active Substance: QUETIAPINE
     Indication: SCHIZOPHRENIA
     Dosage: 800.0MG UNKNOWN
     Route: 048
     Dates: start: 20170926, end: 20171023
  7. LEPTICUR [Concomitant]
     Active Substance: TROPATEPINE HYDROCHLORIDE
  8. SOLIAN [Concomitant]
     Active Substance: AMISULPRIDE

REACTIONS (1)
  - Pancreatitis acute [Recovered/Resolved]

NARRATIVE: CASE EVENT DATE: 20171022
